FAERS Safety Report 9756482 (Version 1)
Quarter: 2013Q4

REPORT INFORMATION
  Report Type: Spontaneous
  Country: US (occurrence: US)
  Receive Date: 20131213
  Receipt Date: 20131213
  Transmission Date: 20140711
  Serious: No
  Sender: FDA-Public Use
  Company Number: US-GLAXOSMITHKLINE-A1042825A

PATIENT
  Age: 43 Year
  Sex: Male
  Weight: 102 kg

DRUGS (1)
  1. EQUATE NTS 14MG, CLEAR [Suspect]
     Indication: EX-TOBACCO USER
     Dates: start: 20130914, end: 20130915

REACTIONS (4)
  - Hypersensitivity [Recovered/Resolved]
  - Psychomotor hyperactivity [Recovered/Resolved]
  - Chest pain [Recovered/Resolved]
  - Nasal congestion [Recovered/Resolved]
